FAERS Safety Report 5915557-9 (Version None)
Quarter: 2008Q4

REPORT INFORMATION
  Report Type: 
  Country: None (occurrence: None)
  Receive Date: 20081010
  Receipt Date: 20080806
  Transmission Date: 20090506
  Serious: No
  Sender: FDA-Public Use
  Company Number: A0741362A

PATIENT
  Age: 57 Year
  Sex: Female

DRUGS (2)
  1. TYKERB [Suspect]
     Indication: BREAST CANCER
     Dosage: 250MG FIVE TIMES PER DAY
     Route: 048
     Dates: start: 20080201
  2. XELODA [Suspect]
     Indication: BREAST CANCER
     Route: 065

REACTIONS (5)
  - ACNE [None]
  - PRURITUS [None]
  - RASH [None]
  - RASH PRURITIC [None]
  - SKIN DISORDER [None]
